FAERS Safety Report 25273555 (Version 2)
Quarter: 2025Q2

REPORT INFORMATION
  Report Type: Spontaneous
  Country: AU (occurrence: AU)
  Receive Date: 20250506
  Receipt Date: 20250508
  Transmission Date: 20250717
  Serious: Yes (Death)
  Sender: GENMAB
  Company Number: AU-ABBVIE-6266999

PATIENT
  Age: 60 Year
  Sex: Female

DRUGS (1)
  1. EPCORITAMAB [Suspect]
     Active Substance: EPCORITAMAB
     Indication: Product used for unknown indication
     Route: 058

REACTIONS (2)
  - Pseudomonas infection [Fatal]
  - Meningitis bacterial [Fatal]

NARRATIVE: CASE EVENT DATE: 20250301
